FAERS Safety Report 5917736-3 (Version None)
Quarter: 2008Q4

REPORT INFORMATION
  Report Type: 
  Country: None (occurrence: None)
  Receive Date: 20081014
  Receipt Date: 20080827
  Transmission Date: 20090506
  Serious: No
  Sender: FDA-Public Use
  Company Number: US-BAYER-200832232NA

PATIENT
  Age: 59 Year
  Sex: Female

DRUGS (1)
  1. CLIMARA [Suspect]
     Indication: MENOPAUSAL SYMPTOMS
     Route: 062
     Dates: start: 19960101

REACTIONS (4)
  - DERMATITIS CONTACT [None]
  - DRUG EFFECT DECREASED [None]
  - HOT FLUSH [None]
  - MENOPAUSAL SYMPTOMS [None]
